FAERS Safety Report 8379474-X (Version None)
Quarter: 2012Q2

REPORT INFORMATION
  Report Type: 
  Country: None (occurrence: None)
  Receive Date: 20120523
  Receipt Date: 20120511
  Transmission Date: 20120825
  Serious: Yes (Other)
  Sender: FDA-Public Use
  Company Number: US-JNJFOC-20120512426

PATIENT
  Sex: Female
  Weight: 91.63 kg

DRUGS (7)
  1. LEVODOPA [Concomitant]
     Indication: RESTLESS LEGS SYNDROME
     Route: 048
     Dates: start: 20110101
  2. MEDROXYPROGESTERONE [Concomitant]
     Indication: MENOPAUSE
     Route: 048
  3. ALL OTHER THERAPEUTICS [Concomitant]
     Indication: BLOOD PRESSURE
     Route: 048
     Dates: start: 20110101
  4. REMICADE [Suspect]
     Dosage: 100 (UNITS UNSPECIFIED)
     Route: 042
     Dates: start: 20120101
  5. ESTRADIOL [Concomitant]
     Indication: MENOPAUSE
     Route: 048
  6. PAXIL [Concomitant]
     Indication: ANXIETY
     Route: 048
     Dates: start: 20060101
  7. REMICADE [Suspect]
     Indication: RHEUMATOID ARTHRITIS
     Dosage: 4 TH INFUSION
     Route: 042
     Dates: start: 20120426, end: 20120426

REACTIONS (7)
  - NAUSEA [None]
  - CHOLELITHIASIS [None]
  - INFUSION RELATED REACTION [None]
  - PRURITUS [None]
  - URTICARIA [None]
  - DRUG INEFFECTIVE [None]
  - INADEQUATE ANALGESIA [None]
